FAERS Safety Report 7696058 (Version 3)
Quarter: 2013Q3

REPORT INFORMATION
  Report Type: Spontaneous
  Country: FR (occurrence: FR)
  Receive Date: 20101207
  Receipt Date: 20130816
  Transmission Date: 20140515
  Serious: Yes (Hospitalization, Disabling)
  Sender: FDA-Public Use
  Company Number: FR-BAYER-2010-000881

PATIENT
  Age: 59 Year
  Sex: Male

DRUGS (1)
  1. LEVITRA [Suspect]
     Route: 048

REACTIONS (1)
  - Ischaemic stroke [Recovered/Resolved with Sequelae]
